FAERS Safety Report 4689602-5 (Version None)
Quarter: 2005Q2

REPORT INFORMATION
  Report Type: 
  Country: None (occurrence: None)
  Receive Date: 20050613
  Receipt Date: 20050613
  Transmission Date: 20051028
  Serious: Yes (Other)
  Sender: FDA-Public Use
  Company Number: None

PATIENT
  Sex: Female
  Weight: 57.6068 kg

DRUGS (8)
  1. AVASTIN [Suspect]
     Indication: OVARIAN CANCER
     Dosage: 15 MG/KG, Q 3 WEEKS, IV
     Route: 042
     Dates: start: 20050401, end: 20050513
  2. TAXOL [Concomitant]
  3. CARBOPLATIN [Concomitant]
  4. BENADRYL [Concomitant]
  5. FAMOTIDINE [Concomitant]
  6. DOLASETRON [Concomitant]
  7. FOSAMAX [Concomitant]
  8. IBUPROFEN [Concomitant]

REACTIONS (3)
  - EPISTAXIS [None]
  - NASAL MUCOSAL DISORDER [None]
  - NASAL SEPTUM PERFORATION [None]
